FAERS Safety Report 8391230-5 (Version None)
Quarter: 2012Q2

REPORT INFORMATION
  Report Type: 
  Country: None (occurrence: None)
  Receive Date: 20120517
  Receipt Date: 20120509
  Transmission Date: 20120825
  Serious: Yes (Hospitalization)
  Sender: FDA-Public Use
  Company Number: 2011SP059332

PATIENT
  Age: 59 Year
  Sex: Female

DRUGS (3)
  1. VICTRELIS [Suspect]
     Indication: HEPATITIS C
     Dosage: 2400 MG;QD
     Dates: start: 20110930
  2. COPEGUS [Suspect]
     Indication: HEPATITIS C
     Dosage: 600 MG;QD
  3. PEGASYS [Suspect]
     Indication: HEPATITIS C
     Dosage: 80 MCG;QW

REACTIONS (8)
  - ATRIOVENTRICULAR BLOCK [None]
  - ELECTROCARDIOGRAM PQ INTERVAL PROLONGED [None]
  - CIRCULATORY COLLAPSE [None]
  - TACHYCARDIA [None]
  - FALL [None]
  - NEUTROPENIA [None]
  - ANAEMIA [None]
  - HEAD INJURY [None]
